FAERS Safety Report 18867095 (Version 5)
Quarter: 2021Q2

REPORT INFORMATION
  Report Type: Spontaneous
  Country: US (occurrence: US)
  Receive Date: 20210209
  Receipt Date: 20210405
  Transmission Date: 20210717
  Serious: Yes (Other)
  Sender: FDA-Public Use
  Company Number: US-SUNOVION-2021SUN000303

PATIENT
  Age: 61 Year
  Sex: Female

DRUGS (5)
  1. NEUPRO [Suspect]
     Active Substance: ROTIGOTINE
     Indication: PARKINSON^S DISEASE
     Dosage: 3 MG
     Route: 065
  2. KYNMOBI [Suspect]
     Active Substance: APOMORPHINE HYDROCHLORIDE
     Dosage: 2?3 TIMES A DAY
     Route: 060
     Dates: start: 20200521
  3. KYNMOBI [Suspect]
     Active Substance: APOMORPHINE HYDROCHLORIDE
     Dosage: 5 TIMES A DAY
     Route: 060
     Dates: start: 201601
  4. NEUPRO [Suspect]
     Active Substance: ROTIGOTINE
     Dosage: 6 UNK
     Route: 065
  5. KYNMOBI [Suspect]
     Active Substance: APOMORPHINE HYDROCHLORIDE
     Indication: PARKINSON^S DISEASE
     Dosage: 1?2 TIMES A DAY
     Route: 060

REACTIONS (19)
  - Peripheral coldness [Unknown]
  - Dyskinesia [Unknown]
  - Nervousness [Unknown]
  - Back pain [Unknown]
  - Parkinson^s disease [Unknown]
  - Anxiety [Unknown]
  - Deep brain stimulation [Unknown]
  - Feeling abnormal [Unknown]
  - Arthralgia [Unknown]
  - Poor quality sleep [Unknown]
  - Spinal pain [Unknown]
  - Bradykinesia [Unknown]
  - Poverty of speech [Unknown]
  - Fatigue [Unknown]
  - Dysarthria [Unknown]
  - Feeling abnormal [Unknown]
  - Dystonia [Unknown]
  - Pain in extremity [Unknown]
  - Musculoskeletal stiffness [Unknown]

NARRATIVE: CASE EVENT DATE: 202012
